FAERS Safety Report 23216945 (Version 1)
Quarter: 2023Q4

REPORT INFORMATION
  Report Type: Report from Study
  Country: US (occurrence: US)
  Receive Date: 20231122
  Receipt Date: 20231122
  Transmission Date: 20240110
  Serious: Yes (Other)
  Sender: FDA-Public Use
  Company Number: US-UCBSA-2023014989

PATIENT
  Age: 33 Year
  Sex: Female

DRUGS (5)
  1. FINTEPLA [Suspect]
     Active Substance: FENFLURAMINE
     Indication: Idiopathic generalised epilepsy
     Dosage: 2.4 MILLILITER, 2X/DAY (BID)
     Dates: start: 20221027
  2. FINTEPLA [Suspect]
     Active Substance: FENFLURAMINE
     Dosage: 2.4 MILLILITER, 2X/DAY (BID)
  3. FINTEPLA [Suspect]
     Active Substance: FENFLURAMINE
     Dosage: 2.4ML EVERY MORNING AND 4.9ML EVERY NIGHT AT BEDTIME
  4. VIMPAT [Concomitant]
     Active Substance: LACOSAMIDE
     Indication: Seizure
     Dosage: 200 MILLIGRAM, 2X/DAY (BID)
     Route: 048
  5. LAMICTAL [Concomitant]
     Active Substance: LAMOTRIGINE
     Indication: Seizure
     Dosage: 200 MILLIGRAM, 2X/DAY (BID)
     Route: 048

REACTIONS (6)
  - Seizure [Not Recovered/Not Resolved]
  - Fatigue [Not Recovered/Not Resolved]
  - Asthenia [Not Recovered/Not Resolved]
  - Dizziness [Not Recovered/Not Resolved]
  - Nausea [Not Recovered/Not Resolved]
  - Product use in unapproved indication [Unknown]

NARRATIVE: CASE EVENT DATE: 20221027
